FAERS Safety Report 5017081-7 (Version None)
Quarter: 2006Q2

REPORT INFORMATION
  Report Type: 
  Country: None (occurrence: None)
  Receive Date: 20060526
  Receipt Date: 20060509
  Transmission Date: 20061013
  Serious: Yes (Hospitalization)
  Sender: FDA-Public Use
  Company Number: US200603006863

PATIENT
  Age: 17 Year
  Sex: Female

DRUGS (3)
  1. STRATTERA [Suspect]
     Dosage: 800 MG,
     Dates: start: 20060326, end: 20060326
  2. EFFEXOR [Concomitant]
  3. LAMICTAL [Concomitant]

REACTIONS (6)
  - HEPATIC ENZYME INCREASED [None]
  - INTENTIONAL OVERDOSE [None]
  - MYDRIASIS [None]
  - SUICIDE ATTEMPT [None]
  - TACHYCARDIA [None]
  - VOMITING [None]
